FAERS Safety Report 7312610-2 (Version None)
Quarter: 2011Q1

REPORT INFORMATION
  Report Type: 
  Country: None (occurrence: None)
  Receive Date: 20110224
  Receipt Date: 20100726
  Transmission Date: 20110831
  Serious: No
  Sender: FDA-Public Use
  Company Number: US-MYLANLABS-2010S1013544

PATIENT
  Sex: Female

DRUGS (4)
  1. ATENOLOL [Suspect]
     Indication: BLOOD PRESSURE INCREASED
     Route: 048
     Dates: start: 20070401
  2. ATIVAN [Concomitant]
  3. DARVOCET [Concomitant]
  4. PROCARDIA XL [Suspect]
     Indication: BLOOD PRESSURE INCREASED
     Dates: start: 20070401

REACTIONS (7)
  - FATIGUE [None]
  - DEPRESSION [None]
  - EPHELIDES [None]
  - AFFECT LABILITY [None]
  - LETHARGY [None]
  - HYPOTENSION [None]
  - VISION BLURRED [None]
